FAERS Safety Report 5563066-1 (Version None)
Quarter: 2007Q4

REPORT INFORMATION
  Report Type: 
  Country: None (occurrence: None)
  Receive Date: 20071217
  Receipt Date: 20071212
  Transmission Date: 20080405
  Serious: Yes (Other)
  Sender: FDA-Public Use
  Company Number: A0696080A

PATIENT
  Age: 58 Year
  Sex: Male

DRUGS (7)
  1. REQUIP [Suspect]
     Indication: RESTLESS LEGS SYNDROME
     Dosage: 3MG AT NIGHT
     Route: 048
     Dates: start: 20060501, end: 20071126
  2. FLEXERIL [Suspect]
     Dosage: 10MG THREE TIMES PER DAY
     Route: 048
  3. MOBIC [Suspect]
     Indication: OSTEOARTHRITIS
     Dosage: 30MG PER DAY
     Route: 048
  4. NORCO [Suspect]
     Indication: DRUG USE FOR UNKNOWN INDICATION
     Route: 065
  5. TYLENOL [Concomitant]
  6. ASPIRIN [Concomitant]
  7. ANTIDEPRESSANT [Concomitant]

REACTIONS (4)
  - ALANINE AMINOTRANSFERASE INCREASED [None]
  - ASPARTATE AMINOTRANSFERASE INCREASED [None]
  - BLOOD ALKALINE PHOSPHATASE INCREASED [None]
  - LIVER FUNCTION TEST ABNORMAL [None]
